FAERS Safety Report 8940386 (Version 1)
Quarter: 2012Q4

REPORT INFORMATION
  Report Type: 
  Country: US (occurrence: US)
  Receive Date: 20121203
  Receipt Date: 20121203
  Transmission Date: 20130627
  Serious: Yes (Hospitalization)
  Sender: FDA-Public Use
  Company Number: US-BAYER-2012-124958

PATIENT
  Age: 25 Year
  Sex: Female
  Weight: 59.86 kg

DRUGS (6)
  1. YAZ [Suspect]
  2. YASMIN [Suspect]
  3. CLARAVIS [Concomitant]
     Indication: ACNE
  4. SPIRONOLACTONE [Concomitant]
     Indication: ACNE
  5. CLARINEX [DESLORATADINE] [Concomitant]
  6. ACCUTANE [Concomitant]

REACTIONS (1)
  - Transient ischaemic attack [Recovered/Resolved]
